FAERS Safety Report 16190392 (Version 1)
Quarter: 2019Q2

REPORT INFORMATION
  Report Type: Spontaneous
  Country: US (occurrence: US)
  Receive Date: 20190313
  Receipt Date: 20190313
  Transmission Date: 20190711
  Serious: No
  Sender: FDA-Public Use
  Company Number: None

PATIENT
  Age: 73 Year
  Sex: Female
  Weight: 77.11 kg

DRUGS (2)
  1. STELARA [Suspect]
     Active Substance: USTEKINUMAB
     Indication: PSORIASIS
     Dosage: INJECT 45MG  SUBCUTANEOUSLY EVERY 12  WEEKS  AS DIRECTED
     Route: 058
     Dates: start: 201808
  2. STELARA [Suspect]
     Active Substance: USTEKINUMAB
     Indication: DERMATITIS ATOPIC
     Dosage: INJECT 45MG  SUBCUTANEOUSLY EVERY 12  WEEKS  AS DIRECTED
     Route: 058
     Dates: start: 201808

REACTIONS (1)
  - Skin laceration [None]
